FAERS Safety Report 8999771 (Version 1)
Quarter: 2013Q1

REPORT INFORMATION
  Report Type: Spontaneous
  Country: US (occurrence: US)
  Receive Date: 20130102
  Receipt Date: 20130102
  Transmission Date: 20140127
  Serious: No
  Sender: FDA-Public Use
  Company Number: US-ROXANE LABORATORIES, INC.-2012-RO-02590RO

PATIENT
  Sex: 0

DRUGS (3)
  1. HYDROMORPHONE [Suspect]
  2. TESTOSTERONE [Suspect]
  3. FENTANYL [Suspect]

REACTIONS (1)
  - Drug interaction [Unknown]
